FAERS Safety Report 11998330 (Version 6)
Quarter: 2016Q2

REPORT INFORMATION
  Report Type: Spontaneous
  Country: HR (occurrence: HR)
  Receive Date: 20160203
  Receipt Date: 20160407
  Transmission Date: 20160815
  Serious: Yes (Death, Other)
  Sender: FDA-Public Use
  Company Number: PHHY2016HR013942

PATIENT
  Age: 54 Year
  Sex: Male

DRUGS (7)
  1. EVEROLIMUS [Interacting]
     Active Substance: EVEROLIMUS
     Indication: IMMUNOSUPPRESSANT DRUG THERAPY
  2. RIFAMPICIN [Interacting]
     Active Substance: RIFAMPIN
     Indication: MYCOBACTERIUM AVIUM COMPLEX INFECTION
     Route: 065
  3. TACROLIMUS. [Interacting]
     Active Substance: TACROLIMUS
     Indication: IMMUNOSUPPRESSANT DRUG THERAPY
  4. ALEMTUZUMAB [Suspect]
     Active Substance: ALEMTUZUMAB
     Indication: IMMUNOSUPPRESSANT DRUG THERAPY
     Route: 065
  5. EVEROLIMUS [Interacting]
     Active Substance: EVEROLIMUS
     Indication: LUNG TRANSPLANT
     Route: 065
  6. ALEMTUZUMAB [Suspect]
     Active Substance: ALEMTUZUMAB
     Indication: LUNG TRANSPLANT
  7. TACROLIMUS. [Interacting]
     Active Substance: TACROLIMUS
     Indication: LUNG TRANSPLANT
     Route: 065

REACTIONS (14)
  - Septic shock [Fatal]
  - Immunosuppressant drug level decreased [Recovered/Resolved]
  - Drug interaction [Unknown]
  - Off label use [Unknown]
  - Multiple organ dysfunction syndrome [Fatal]
  - Mycobacterium avium complex infection [Recovered/Resolved]
  - Pneumonia [Unknown]
  - Pneumothorax [Unknown]
  - Acinetobacter infection [Unknown]
  - Respiratory tract infection bacterial [Recovered/Resolved]
  - Pleural effusion [Unknown]
  - Pseudomonas infection [Recovered/Resolved]
  - Pneumonia klebsiella [Recovered/Resolved]
  - Acute kidney injury [Unknown]
